FAERS Safety Report 4744528-3 (Version None)
Quarter: 2005Q3

REPORT INFORMATION
  Report Type: 
  Country: None (occurrence: None)
  Receive Date: 20050808
  Receipt Date: 20050719
  Transmission Date: 20060218
  Serious: Yes (Other)
  Sender: FDA-Public Use
  Company Number: MED000142

PATIENT
  Age: 14 Year
  Sex: Male

DRUGS (1)
  1. LACTATED RINGER'S [Suspect]
     Indication: FLUID REPLACEMENT
     Dosage: 500 ML;
     Dates: start: 20050420

REACTIONS (2)
  - ANAPHYLACTIC REACTION [None]
  - INFUSION RELATED REACTION [None]
